FAERS Safety Report 9441844 (Version 2)
Quarter: 2013Q4

REPORT INFORMATION
  Report Type: Spontaneous
  Country: GB (occurrence: None)
  Receive Date: 20130801
  Receipt Date: 20131113
  Transmission Date: 20140711
  Serious: Yes (Hospitalization)
  Sender: FDA-Public Use
  Company Number: SYM-2013-06953

PATIENT
  Age: 55 Year
  Sex: Female

DRUGS (7)
  1. METRONIDAZOLE (METRONIDAZOLE) [Suspect]
     Indication: TOOTH INFECTION
     Route: 048
     Dates: start: 20130627, end: 20130630
  2. PREMARIN (ESTROGENS CONJUGATED) [Concomitant]
  3. FEXOFENADINE (FEXOFENADINE) [Concomitant]
  4. LEVOCETIRIZINE (LEVOCETIRIZINE) [Concomitant]
  5. PREDNISOLONE (PREDNISOLONE) [Concomitant]
  6. ORLISTAT (ORLISTAT) [Concomitant]
  7. OMEPRAZOLE (OMEPRAZOLE) [Concomitant]

REACTIONS (3)
  - Chest pain [None]
  - Muscular weakness [None]
  - Paraesthesia [None]
